FAERS Safety Report 9129516 (Version 1)
Quarter: 2013Q1

REPORT INFORMATION
  Report Type: Spontaneous
  Country: FR (occurrence: FR)
  Receive Date: 20130125
  Receipt Date: 20130125
  Transmission Date: 20140127
  Serious: Yes (Hospitalization)
  Sender: FDA-Public Use
  Company Number: FR-ACTELION-A-CH2013-78089

PATIENT
  Age: 35 Year
  Sex: Female

DRUGS (15)
  1. TRACLEER [Suspect]
     Indication: PULMONARY ARTERIAL HYPERTENSION
     Dosage: 125 MG, QD
     Route: 048
     Dates: start: 20120807, end: 20120817
  2. TRACLEER [Suspect]
     Dosage: 62.5 MG, QD
     Route: 048
     Dates: start: 201207, end: 20120806
  3. LEXOMIL [Concomitant]
  4. CORGARD [Concomitant]
  5. MEDIATENSYL [Concomitant]
  6. KARDEGIC [Concomitant]
  7. TRIATEC [Concomitant]
  8. CRESTOR [Concomitant]
  9. GABAPENTINE [Concomitant]
  10. DAFALGAN CODEIN [Concomitant]
  11. EUPANTOL [Concomitant]
  12. ZOLPIDEM [Concomitant]
  13. RIVOTRIL [Concomitant]
  14. CYMBALTA [Concomitant]
  15. CONTRAMAL [Concomitant]

REACTIONS (6)
  - Hypovolaemic shock [Recovered/Resolved]
  - Diarrhoea [Recovered/Resolved]
  - Abdominal pain [Recovered/Resolved]
  - Dehydration [Recovered/Resolved]
  - Vomiting [Recovered/Resolved]
  - Asthenia [Unknown]
